FAERS Safety Report 4638820-0 (Version None)
Quarter: 2005Q2

REPORT INFORMATION
  Report Type: 
  Country: None (occurrence: None)
  Receive Date: 20050328
  Receipt Date: 20050208
  Transmission Date: 20051028
  Serious: No
  Sender: FDA-Public Use
  Company Number: USA050291650

PATIENT
  Age: 8 Year
  Sex: Male

DRUGS (1)
  1. STRATTERA [Suspect]
     Dosage: 43 MG DAY
     Dates: start: 20041101, end: 20050101

REACTIONS (2)
  - MOOD ALTERED [None]
  - SOMNOLENCE [None]
